FAERS Safety Report 16043248 (Version 1)
Quarter: 2019Q1

REPORT INFORMATION
  Report Type: Spontaneous
  Country: GR (occurrence: GR)
  Receive Date: 20190306
  Receipt Date: 20190306
  Transmission Date: 20190418
  Serious: Yes (Death, Hospitalization, Other)
  Sender: FDA-Public Use
  Company Number: GR-MYLANLABS-2019M1020793

PATIENT
  Age: 81 Year
  Sex: Female

DRUGS (4)
  1. IRBESARTAN HYDROCHLOROTHIAZIDE [Concomitant]
     Active Substance: HYDROCHLOROTHIAZIDE\IRBESARTAN
     Indication: HYPERTENSION
  2. SALICYLIC ACID. [Concomitant]
     Active Substance: SALICYLIC ACID
     Indication: ISCHAEMIC STROKE
  3. METFORMIN [Suspect]
     Active Substance: METFORMIN HYDROCHLORIDE
     Indication: DIABETES MELLITUS
  4. ATORVASTATIN [Concomitant]
     Active Substance: ATORVASTATIN
     Indication: ISCHAEMIC STROKE

REACTIONS (2)
  - Metabolic acidosis [Fatal]
  - Myocardial infarction [Fatal]
